FAERS Safety Report 7765170-6 (Version None)
Quarter: 2011Q3

REPORT INFORMATION
  Report Type: 
  Country: None (occurrence: None)
  Receive Date: 20110919
  Receipt Date: 20110909
  Transmission Date: 20111222
  Serious: Yes (Disabling, Other)
  Sender: FDA-Public Use
  Company Number: 2011SP042743

PATIENT
  Age: 53 Year
  Sex: Male

DRUGS (1)
  1. INTERFERON [Suspect]
     Indication: HEPATITIS C

REACTIONS (5)
  - BACK PAIN [None]
  - DIABETES MELLITUS [None]
  - IMPAIRED WORK ABILITY [None]
  - DEPRESSION [None]
  - DIABETIC COMA [None]
